FAERS Safety Report 24593258 (Version 2)
Quarter: 2024Q4

REPORT INFORMATION
  Report Type: Report from Study
  Country: US (occurrence: US)
  Receive Date: 20241108
  Receipt Date: 20241202
  Transmission Date: 20250115
  Serious: Yes (Other)
  Sender: TAKEDA
  Company Number: US-TAKEDA-2024TUS045912

PATIENT
  Age: 52 Year
  Sex: Female
  Weight: 82 kg

DRUGS (2)
  1. FRUQUINTINIB [Suspect]
     Active Substance: FRUQUINTINIB
     Indication: Colon cancer
     Dosage: 5 MILLIGRAM
  2. FRUQUINTINIB [Suspect]
     Active Substance: FRUQUINTINIB
     Dosage: 5 MILLIGRAM

REACTIONS (20)
  - Renal haemorrhage [Unknown]
  - Renal disorder [Unknown]
  - Illness [Unknown]
  - Confusional state [Unknown]
  - Product dose omission issue [Unknown]
  - Tongue discomfort [Unknown]
  - Blister [Unknown]
  - Throat irritation [Unknown]
  - Retching [Unknown]
  - Renal neoplasm [Unknown]
  - Dry skin [Unknown]
  - Dry mouth [Unknown]
  - Dysphagia [Unknown]
  - Feeding disorder [Unknown]
  - Gait disturbance [Unknown]
  - Pain [Unknown]
  - Haemorrhage [Unknown]
  - Vomiting [Unknown]
  - Weight decreased [Unknown]
  - Dysphonia [Unknown]

NARRATIVE: CASE EVENT DATE: 20240501
